FAERS Safety Report 9479671 (Version 1)
Quarter: 2013Q3

REPORT INFORMATION
  Report Type: Spontaneous
  Country: US (occurrence: US)
  Receive Date: 20130827
  Receipt Date: 20130827
  Transmission Date: 20140515
  Serious: Yes (Hospitalization, Other)
  Sender: FDA-Public Use
  Company Number: US-JNJFOC-20130808120

PATIENT
  Age: 28 Year
  Sex: Female
  Weight: 67 kg

DRUGS (2)
  1. DIPHENHYDRAMINE HYDROCHLORIDE [Suspect]
     Indication: PRODUCT USED FOR UNKNOWN INDICATION
     Dosage: 29 CAPSULES 50 MG PER CAPSULE
     Route: 048
  2. ALCOHOL [Suspect]
     Indication: PRODUCT USED FOR UNKNOWN INDICATION
     Route: 065

REACTIONS (11)
  - Suicide attempt [Unknown]
  - Compartment syndrome [Recovering/Resolving]
  - Hypoaesthesia [Recovered/Resolved]
  - Tachycardia [Unknown]
  - Renal failure [Recovering/Resolving]
  - Muscular weakness [Recovered/Resolved]
  - Rhabdomyolysis [Unknown]
  - Overdose [Unknown]
  - Paraesthesia [Unknown]
  - Muscle disorder [Unknown]
  - Gastrointestinal sounds abnormal [Unknown]
